FAERS Safety Report 5270225-4 (Version None)
Quarter: 2007Q1

REPORT INFORMATION
  Report Type: 
  Country: None (occurrence: None)
  Receive Date: 20070320
  Receipt Date: 20070309
  Transmission Date: 20070707
  Serious: Yes (Other)
  Sender: FDA-Public Use
  Company Number: GB-PFIZER INC-2007019308

PATIENT
  Sex: Female

DRUGS (5)
  1. CHAMPIX [Suspect]
  2. GABAPENTIN [Concomitant]
  3. AMITRIPTYLINE HCL [Concomitant]
  4. TRAMADOL HCL [Concomitant]
  5. LANSOPRAZOLE [Concomitant]

REACTIONS (2)
  - OEDEMA PERIPHERAL [None]
  - RENAL DISORDER [None]
